FAERS Safety Report 15353229 (Version 1)
Quarter: 2018Q3

REPORT INFORMATION
  Report Type: Spontaneous
  Country: KR (occurrence: KR)
  Receive Date: 20180905
  Receipt Date: 20180905
  Transmission Date: 20181010
  Serious: Yes (Other)
  Sender: FDA-Public Use
  Company Number: KR-ASTRAZENECA-2018SF09969

PATIENT
  Age: 49 Year
  Sex: Female

DRUGS (7)
  1. EXEMESTANE. [Concomitant]
     Active Substance: EXEMESTANE
  2. TAMOXIFEN [Suspect]
     Active Substance: TAMOXIFEN
     Route: 048
  3. PACLITAXEL. [Concomitant]
     Active Substance: PACLITAXEL
     Dates: start: 20180313, end: 20180821
  4. ANASTROZOLE. [Suspect]
     Active Substance: ANASTROZOLE
     Route: 048
     Dates: start: 201405, end: 201508
  5. FULVESTRANT. [Suspect]
     Active Substance: FULVESTRANT
     Route: 030
     Dates: start: 201606, end: 201609
  6. EVEROLIMUS. [Concomitant]
     Active Substance: EVEROLIMUS
  7. DOXORUBICIN+CYCLOPHOSPHAMIDE [Concomitant]
     Dosage: DOXORUBICIN? 60MG/M2 IV ON DAY 1; CYCLOPHOSPHAMIDE? 600MG/M2 IV ON DAY 1; REPEAT EVERY 21?28 DAYS...
     Dates: start: 201610, end: 20170327

REACTIONS (5)
  - Metastases to liver [Unknown]
  - Metastases to bone [Unknown]
  - Endometriosis [Unknown]
  - Malignant neoplasm progression [Unknown]
  - Metastases to spine [Unknown]

NARRATIVE: CASE EVENT DATE: 20140919
